FAERS Safety Report 5118191-6 (Version None)
Quarter: 2006Q3

REPORT INFORMATION
  Report Type: 
  Country: None (occurrence: None)
  Receive Date: 20060928
  Receipt Date: 20060928
  Transmission Date: 20061208
  Serious: Yes (Life-Threatening, Hospitalization)
  Sender: FDA-Public Use
  Company Number: None

PATIENT
  Sex: Female
  Weight: 117.9352 kg

DRUGS (11)
  1. IOHEXOL 350MGI/ML AMERSHAM HEALTH [Suspect]
     Indication: BIOPSY LIVER
     Dosage: 50 ML ONCE IV
     Route: 042
     Dates: start: 20060907, end: 20060907
  2. LEVOTHYROXINE SODIUM [Concomitant]
  3. PROPRANOLOL [Concomitant]
  4. LISINOPRIL [Concomitant]
  5. GABAPENTIN [Concomitant]
  6. METOCLOPRAMIDE [Concomitant]
  7. INSULIN GLARGINE [Concomitant]
  8. PANTOPRAZOLE SODIUM [Concomitant]
  9. EXEMESTANE [Concomitant]
  10. ESCITALOPRAM [Concomitant]
  11. SIMVASTATIN [Concomitant]

REACTIONS (4)
  - CONTRAST MEDIA REACTION [None]
  - DYSPNOEA [None]
  - OXYGEN SATURATION DECREASED [None]
  - TYPE IV HYPERSENSITIVITY REACTION [None]
